FAERS Safety Report 5046545-5 (Version None)
Quarter: 2006Q2

REPORT INFORMATION
  Report Type: 
  Country: None (occurrence: None)
  Receive Date: 20060630
  Receipt Date: 20060620
  Transmission Date: 20061013
  Serious: Yes (Hospitalization, Other)
  Sender: FDA-Public Use
  Company Number: 2006AP000462

PATIENT
  Age: 72 Year
  Sex: Female

DRUGS (14)
  1. PAROXETINE HCL [Suspect]
     Indication: DEPRESSION
     Dosage: 20 MG;QD
  2. PAROXETINE HCL [Suspect]
     Indication: OBSESSIVE-COMPULSIVE DISORDER
     Dosage: 20 MG;QD
  3. AMITRIPTYLINE HYDROCHLORIDE [Suspect]
     Indication: DEPRESSION
     Dosage: 10 MG;QD
  4. AMITRIPTYLINE HYDROCHLORIDE [Suspect]
     Indication: OBSESSIVE-COMPULSIVE DISORDER
     Dosage: 10 MG;QD
  5. LINEZOLID [Suspect]
     Indication: INFECTION
     Dosage: 600 MG;Q12H
  6. ALPRAZOLAM [Concomitant]
  7. TRAZODONE HCL [Concomitant]
  8. VENLAFAXINE HCL [Concomitant]
  9. BISOPROLOL FUMARATE [Concomitant]
  10. CAPTOPRIL [Concomitant]
  11. ALENDRONATE SODIUM [Concomitant]
  12. CALCIUM GLUCONATE [Concomitant]
  13. ENOXAPARIN SODIUM [Concomitant]
  14. AZTREONAM [Concomitant]

REACTIONS (22)
  - AGITATION [None]
  - ASTHENIA [None]
  - CHOLELITHIASIS [None]
  - CONFUSIONAL STATE [None]
  - DISORIENTATION [None]
  - DRUG INTERACTION [None]
  - DYSARTHRIA [None]
  - ESCHERICHIA URINARY TRACT INFECTION [None]
  - HYPERTENSION [None]
  - HYPERTONIA [None]
  - HYPONATRAEMIA [None]
  - KYPHOSCOLIOSIS [None]
  - MENTAL DISORDER [None]
  - PERITONEAL HAEMORRHAGE [None]
  - POST PROCEDURAL HAEMORRHAGE [None]
  - PYREXIA [None]
  - SEPTIC SHOCK [None]
  - SEROTONIN SYNDROME [None]
  - SOMNOLENCE [None]
  - STAPHYLOCOCCAL INFECTION [None]
  - TACHYCARDIA [None]
  - THROMBOPHLEBITIS [None]
